FAERS Safety Report 21577228 (Version 1)
Quarter: 2022Q4

REPORT INFORMATION
  Report Type: Report from Study
  Country: US (occurrence: US)
  Receive Date: 20221110
  Receipt Date: 20221110
  Transmission Date: 20230113
  Serious: No
  Sender: FDA-Public Use
  Company Number: US-ABBVIE-4136591

PATIENT
  Sex: Female

DRUGS (1)
  1. HUMIRA [Suspect]
     Active Substance: ADALIMUMAB
     Indication: Juvenile idiopathic arthritis
     Route: 058

REACTIONS (6)
  - Peripheral swelling [Unknown]
  - Therapeutic product effect variable [Recovering/Resolving]
  - Nasopharyngitis [Recovered/Resolved]
  - Pain [Unknown]
  - Joint swelling [Unknown]
  - Mobility decreased [Unknown]
